FAERS Safety Report 15961805 (Version 1)
Quarter: 2019Q1

REPORT INFORMATION
  Report Type: Spontaneous
  Country: US (occurrence: US)
  Receive Date: 20190214
  Receipt Date: 20190214
  Transmission Date: 20190417
  Serious: Yes (Hospitalization, Disabling)
  Sender: FDA-Public Use
  Company Number: US-JNJFOC-20190215142

PATIENT
  Age: 52 Year
  Sex: Male

DRUGS (3)
  1. JANUVIA [Suspect]
     Active Substance: SITAGLIPTIN PHOSPHATE
     Indication: PRODUCT USED FOR UNKNOWN INDICATION
     Route: 048
  2. INVOKANA [Suspect]
     Active Substance: CANAGLIFLOZIN
     Indication: TYPE 2 DIABETES MELLITUS
     Route: 048
     Dates: start: 20161006, end: 201702
  3. NOVOLOG [Suspect]
     Active Substance: INSULIN ASPART
     Indication: PRODUCT USED FOR UNKNOWN INDICATION
     Dosage: 100 UNIT/ML SOLUTION, AT SLIDING SCALE
     Route: 058

REACTIONS (7)
  - Lipase increased [Unknown]
  - Diabetic foot [Unknown]
  - Abscess [Unknown]
  - Sepsis [Unknown]
  - Osteomyelitis [Unknown]
  - Acute kidney injury [Unknown]
  - Leg amputation [Unknown]

NARRATIVE: CASE EVENT DATE: 20170210
